FAERS Safety Report 20236201 (Version 1)
Quarter: 2021Q4

REPORT INFORMATION
  Report Type: Spontaneous
  Country: CN (occurrence: CN)
  Receive Date: 20211228
  Receipt Date: 20211228
  Transmission Date: 20220303
  Serious: Yes (Other)
  Sender: FDA-Public Use
  Company Number: CN-UCBSA-2021060043

PATIENT

DRUGS (1)
  1. KEPPRA [Suspect]
     Active Substance: LEVETIRACETAM
     Indication: Epilepsy
     Dosage: UNK

REACTIONS (5)
  - Liver injury [Unknown]
  - Hypersensitivity [Unknown]
  - Adverse event [Unknown]
  - Drug ineffective [Unknown]
  - Treatment noncompliance [Unknown]
